FAERS Safety Report 9139939 (Version 1)
Quarter: 2013Q1

REPORT INFORMATION
  Report Type: Spontaneous
  Country: US (occurrence: US)
  Receive Date: 20130305
  Receipt Date: 20130305
  Transmission Date: 20140127
  Serious: No
  Sender: FDA-Public Use
  Company Number: US-ENDO PHARMACEUTICALS INC.-NUBN20100002

PATIENT
  Sex: Male

DRUGS (1)
  1. NUBAIN [Suspect]
     Indication: MUSCULOSKELETAL PAIN
     Dosage: UNK

REACTIONS (3)
  - Retching [Unknown]
  - Vomiting [Unknown]
  - Pancreatitis [Unknown]
